FAERS Safety Report 5527377-8 (Version None)
Quarter: 2007Q4

REPORT INFORMATION
  Report Type: 
  Country: None (occurrence: None)
  Receive Date: 20071123
  Receipt Date: 20071114
  Transmission Date: 20080405
  Serious: Yes (Other)
  Sender: FDA-Public Use
  Company Number: T07-USA-05790-01

PATIENT
  Age: 83 Year
  Sex: Male
  Weight: 68.0396 kg

DRUGS (15)
  1. MEMANTINE HCL [Suspect]
     Indication: DEMENTIA ALZHEIMER'S TYPE
     Dates: start: 20071002, end: 20071026
  2. NIFEDIPINE [Concomitant]
  3. LISINOPRIL [Concomitant]
  4. LOVASTATIN [Concomitant]
  5. ARICEPT [Concomitant]
  6. VITAMIN E [Concomitant]
  7. VITAMIN A / BETA CAROTENE [Concomitant]
  8. ASCORBIC ACID [Concomitant]
  9. VITAMIN CAP [Concomitant]
  10. CALCIUM, VIT D, MAGNESIUM, ZINC [Concomitant]
  11. GINKGO BILOBA [Concomitant]
  12. FISH OIL [Concomitant]
  13. MENTAL CLARITY (MUSHROOM EXTRACT) [Concomitant]
  14. POMEGRANATE [Concomitant]
  15. SIESTA (HERBAL SUPPLEMENT) [Concomitant]

REACTIONS (2)
  - IRRITABILITY [None]
  - LETHARGY [None]
